FAERS Safety Report 18369020 (Version 4)
Quarter: 2020Q4

REPORT INFORMATION
  Report Type: Spontaneous
  Country: US (occurrence: US)
  Receive Date: 20201011
  Receipt Date: 20201215
  Transmission Date: 20210114
  Serious: No
  Sender: FDA-Public Use
  Company Number: US-GLAXOSMITHKLINE-US2020AMR197824

PATIENT
  Sex: Female

DRUGS (2)
  1. ZEJULA [Suspect]
     Active Substance: NIRAPARIB
     Indication: OVARIAN CANCER
     Dosage: 200 MG, QD
     Route: 048
     Dates: start: 20200922
  2. ZEJULA [Suspect]
     Active Substance: NIRAPARIB
     Dosage: 300 MG, QD
     Route: 048
     Dates: start: 20200923, end: 20201007

REACTIONS (17)
  - Abdominal pain upper [Unknown]
  - Flatulence [Unknown]
  - Blood potassium decreased [Unknown]
  - Fatigue [Unknown]
  - Gastric disorder [Unknown]
  - Decreased activity [Recovered/Resolved]
  - Rash erythematous [Unknown]
  - Ill-defined disorder [Unknown]
  - Dizziness [Unknown]
  - Hypoaesthesia [Unknown]
  - Nausea [Unknown]
  - Illness [Recovered/Resolved]
  - Hypotension [Unknown]
  - Photosensitivity reaction [Unknown]
  - Insomnia [Unknown]
  - Asthenia [Unknown]
  - Pruritus [Unknown]
